FAERS Safety Report 21515347 (Version 1)
Quarter: 2022Q4

REPORT INFORMATION
  Report Type: Report from Study
  Country: DE (occurrence: DE)
  Receive Date: 20221027
  Receipt Date: 20221027
  Transmission Date: 20230113
  Serious: Yes (Life-Threatening, Other)
  Sender: FDA-Public Use
  Company Number: DE-INSUD PHARMA-2210DE04361

PATIENT

DRUGS (9)
  1. NUVESSA [Suspect]
     Active Substance: METRONIDAZOLE
     Indication: Peritonitis
     Dosage: DAYS 1-2
     Route: 065
  2. NUVESSA [Suspect]
     Active Substance: METRONIDAZOLE
     Dosage: DAYS 29-38
     Route: 065
  3. METAMIZOLE [Suspect]
     Active Substance: METAMIZOLE
     Indication: Procedural pain
     Dosage: DAYS 1-4 60 MILLIGRAM/KILOGRAM, CONTINUOUS INFUSION (125 MG/H) QD
     Route: 042
  4. METAMIZOLE [Suspect]
     Active Substance: METAMIZOLE
     Dosage: DAYS 29-36, 38, 42-43: 60 MILLIGRAM/KILOGRAM, QD
     Route: 042
  5. VANCOMYCIN [Suspect]
     Active Substance: VANCOMYCIN
     Indication: Peritonitis
     Dosage: DAYS 1-20
     Route: 065
  6. MEROPENEM [Suspect]
     Active Substance: MEROPENEM
     Indication: Peritonitis
     Dosage: DAYS 20-24
     Route: 065
  7. MEROPENEM [Suspect]
     Active Substance: MEROPENEM
     Dosage: DAYS 28-39
     Route: 065
  8. CEFOTAXIME [Concomitant]
     Active Substance: CEFOTAXIME SODIUM
     Indication: Peritonitis
     Dosage: UNK
     Route: 065
  9. CLINDAMYCIN HYDROCHLORIDE [Concomitant]
     Active Substance: CLINDAMYCIN HYDROCHLORIDE
     Indication: Peritonitis
     Dosage: UNK
     Route: 065

REACTIONS (1)
  - Agranulocytosis [Recovered/Resolved]
